FAERS Safety Report 20121228 (Version 1)
Quarter: 2021Q4

REPORT INFORMATION
  Report Type: Spontaneous
  Country: US (occurrence: None)
  Receive Date: 20211124
  Receipt Date: 20211124
  Transmission Date: 20220303
  Serious: Yes (Hospitalization)
  Sender: FDA-Public Use
  Company Number: None

PATIENT
  Age: 60 Year
  Sex: Female

DRUGS (1)
  1. KESIMPTA [Suspect]
     Active Substance: OFATUMUMAB
     Route: 058
     Dates: start: 2021

REACTIONS (4)
  - Dyspnoea [None]
  - Chest pain [None]
  - Pain in extremity [None]
  - Myocarditis [None]

NARRATIVE: CASE EVENT DATE: 20211113
